FAERS Safety Report 7293304-9 (Version None)
Quarter: 2011Q1

REPORT INFORMATION
  Report Type: 
  Country: None (occurrence: None)
  Receive Date: 20110215
  Receipt Date: 20110209
  Transmission Date: 20110831
  Serious: Yes (Other)
  Sender: FDA-Public Use
  Company Number: US-B.I. PHARMACEUTICALS,INC./RIDGEFIELD-2011-BP-02394BP

PATIENT
  Sex: Male
  Weight: 106.1 kg

DRUGS (5)
  1. VENLAFAXINE [Concomitant]
     Indication: ANXIETY
     Dosage: 75 MG
     Route: 048
     Dates: start: 20080421
  2. NIASPAN [Concomitant]
     Indication: HYPERCHOLESTEROLAEMIA
     Dosage: 500 MG
     Route: 048
     Dates: start: 20100128
  3. TIOTROPIUM BROMIDE [Suspect]
     Indication: CHRONIC OBSTRUCTIVE PULMONARY DISEASE
     Dosage: 2.5 MCG
     Route: 055
     Dates: start: 20100528
  4. TOPROL-XL [Concomitant]
     Indication: HYPERTENSION
     Dosage: 25 MG
     Route: 048
     Dates: start: 20071218
  5. ZOCOR [Concomitant]
     Indication: HYPERCHOLESTEROLAEMIA
     Dosage: 20 MG
     Route: 048
     Dates: start: 20100128

REACTIONS (2)
  - SPLENIC MARGINAL ZONE LYMPHOMA [None]
  - LEUKAEMIA [None]
